FAERS Safety Report 4978756-9 (Version None)
Quarter: 2006Q2

REPORT INFORMATION
  Report Type: 
  Country: None (occurrence: None)
  Receive Date: 20060417
  Receipt Date: 20060403
  Transmission Date: 20061013
  Serious: Yes (Hospitalization)
  Sender: FDA-Public Use
  Company Number: GXKR2006DK01971

PATIENT
  Sex: Male
  Weight: 20 kg

DRUGS (2)
  1. DICLOXACILLIN [Suspect]
     Indication: STAPHYLOCOCCAL INFECTION
     Dosage: 250 MG, TID, ORAL
     Route: 048
  2. BACTROBAN NASAL (MUPIROCIN CALCIUM) OINTMENT, 2 % [Concomitant]

REACTIONS (6)
  - ANXIETY [None]
  - DEHYDRATION [None]
  - FEAR [None]
  - HALLUCINATION [None]
  - RASH PRURITIC [None]
  - SALMONELLOSIS [None]
